FAERS Safety Report 7713815-9 (Version None)
Quarter: 2011Q3

REPORT INFORMATION
  Report Type: 
  Country: None (occurrence: None)
  Receive Date: 20110826
  Receipt Date: 20110822
  Transmission Date: 20111222
  Serious: No
  Sender: FDA-Public Use
  Company Number: US-PFIZER INC-2011194037

PATIENT
  Sex: Female
  Weight: 63 kg

DRUGS (5)
  1. ZITHROMAX [Suspect]
     Indication: INFECTION
     Dosage: UNK
     Route: 048
     Dates: start: 20110817, end: 20110820
  2. ACETAMINOPHEN W/ CODEINE [Concomitant]
     Dosage: UNK
  3. NEURONTIN [Concomitant]
     Dosage: UNK
  4. ZITHROMAX [Suspect]
     Indication: SINUSITIS
  5. METFORMIN [Concomitant]
     Dosage: UNK

REACTIONS (2)
  - MIGRAINE [None]
  - TINNITUS [None]
